FAERS Safety Report 7153361-7 (Version None)
Quarter: 2010Q4

REPORT INFORMATION
  Report Type: 
  Country: None (occurrence: None)
  Receive Date: 20101213
  Receipt Date: 20101203
  Transmission Date: 20110411
  Serious: Yes (Other)
  Sender: FDA-Public Use
  Company Number: HU-GENZYME-CLOF-1001217

PATIENT
  Sex: Male
  Weight: 19.6 kg

DRUGS (15)
  1. EVOLTRA [Suspect]
     Indication: ACUTE LYMPHOCYTIC LEUKAEMIA
     Dosage: 50 MG/M2, QDX4
     Route: 042
     Dates: start: 20090804, end: 20090807
  2. BUSILVEX [Suspect]
     Indication: ACUTE LYMPHOCYTIC LEUKAEMIA
     Dosage: 16X1.1 MG/UNK
     Route: 042
     Dates: start: 20090804, end: 20090808
  3. CYCLOPHOSPHAMIDE [Suspect]
     Indication: ACUTE LYMPHOCYTIC LEUKAEMIA
     Dosage: 120 MG/KG, UNK
     Route: 042
     Dates: start: 20090808, end: 20090809
  4. METHOTREXATE [Suspect]
     Indication: ACUTE LYMPHOCYTIC LEUKAEMIA
     Dosage: UNK
     Route: 065
     Dates: start: 20090808, end: 20090809
  5. CYCLOSPORINE [Concomitant]
     Indication: PROPHYLAXIS AGAINST GRAFT VERSUS HOST DISEASE
  6. METHOTREXATE [Concomitant]
     Indication: PROPHYLAXIS AGAINST GRAFT VERSUS HOST DISEASE
     Dosage: UNK
     Route: 065
  7. METHOTREXATE [Concomitant]
     Dosage: 10 MG/M2, QD
     Route: 065
     Dates: start: 20090812, end: 20090812
  8. METHOTREXATE [Concomitant]
     Dosage: 10 MG/M2, QD
     Route: 065
     Dates: start: 20090814, end: 20090814
  9. METHOTREXATE [Concomitant]
     Dosage: 10 MG/M2, QD
     Route: 065
     Dates: start: 20090817, end: 20090817
  10. METHOTREXATE [Concomitant]
     Dosage: 10 MG/M2, QD
     Route: 065
     Dates: start: 20090822, end: 20090822
  11. DIFLUCAN [Concomitant]
     Indication: PROPHYLAXIS
     Dosage: 60 MG, QD
     Route: 042
     Dates: start: 20090804
  12. DIFLUCAN [Concomitant]
     Dosage: 60 MG, QW 2X
     Route: 048
  13. NOACID [Concomitant]
     Indication: PROPHYLAXIS
     Dosage: 10 MG, QD
     Route: 042
     Dates: start: 20090804
  14. NOACID [Concomitant]
     Dosage: 10 MG, QD
     Route: 048
  15. AMOXICILLIN [Concomitant]
     Indication: PROPHYLAXIS
     Dosage: 3X250 MG DAILY
     Route: 048
     Dates: start: 20090916

REACTIONS (2)
  - ACUTE GRAFT VERSUS HOST DISEASE IN SKIN [None]
  - CHRONIC GRAFT VERSUS HOST DISEASE [None]
